FAERS Safety Report 10264298 (Version 2)
Quarter: 2014Q3

REPORT INFORMATION
  Report Type: Spontaneous
  Country: US (occurrence: US)
  Receive Date: 20140627
  Receipt Date: 20140720
  Transmission Date: 20150326
  Serious: Yes (Other)
  Sender: FDA-Public Use
  Company Number: US-009507513-1406USA011108

PATIENT
  Age: 79 Year
  Sex: Male

DRUGS (1)
  1. INVANZ [Suspect]
     Active Substance: ERTAPENEM SODIUM
     Indication: URINARY TRACT INFECTION
     Dosage: 1 G, DAILY
     Route: 042
     Dates: start: 20140607, end: 20140617

REACTIONS (4)
  - Asthenia [Recovering/Resolving]
  - Neurotoxicity [Recovering/Resolving]
  - Hallucination [Recovering/Resolving]
  - Urticaria [Recovering/Resolving]

NARRATIVE: CASE EVENT DATE: 20140612
